FAERS Safety Report 6127882-X (Version None)
Quarter: 2009Q1

REPORT INFORMATION
  Report Type: 
  Country: None (occurrence: None)
  Receive Date: 20090320
  Receipt Date: 20090320
  Transmission Date: 20090719
  Serious: Yes (Other)
  Sender: FDA-Public Use
  Company Number: None

PATIENT
  Sex: Female
  Weight: 117.9352 kg

DRUGS (2)
  1. PROLIXIN [Suspect]
     Indication: SCHIZOPHRENIA
     Dosage: 20 MG 1 X DA AT NIGHT TAB FOR 20 YRS PRIOR TO 10 YRS AGO
  2. COGENTIN [Concomitant]

REACTIONS (1)
  - PARKINSONISM [None]
